FAERS Safety Report 9643931 (Version 2)
Quarter: 2013Q4

REPORT INFORMATION
  Report Type: Spontaneous
  Country: SE (occurrence: SE)
  Receive Date: 20131024
  Receipt Date: 20131024
  Transmission Date: 20140711
  Serious: Yes (Other)
  Sender: FDA-Public Use
  Company Number: SE-BRISTOL-MYERS SQUIBB COMPANY-19481217

PATIENT
  Sex: Male

DRUGS (1)
  1. EFAVIRENZ TABS [Suspect]
     Indication: HIV INFECTION
     Route: 048

REACTIONS (2)
  - Atrial fibrillation [Unknown]
  - Palpitations [Unknown]
